FAERS Safety Report 4758740-0 (Version None)
Quarter: 2005Q3

REPORT INFORMATION
  Report Type: 
  Country: None (occurrence: None)
  Receive Date: 20050831
  Receipt Date: 20050831
  Transmission Date: 20060218
  Serious: Yes (Hospitalization)
  Sender: FDA-Public Use
  Company Number: None

PATIENT
  Age: 61 Year
  Sex: Female
  Weight: 67.1324 kg

DRUGS (10)
  1. TARCEVA [Suspect]
     Indication: BREAST CANCER METASTATIC
     Dosage: 150 MG PO DAILY
     Route: 048
     Dates: start: 20040301
  2. LETROZOLE [Suspect]
     Indication: BREAST CANCER METASTATIC
     Dosage: 2.5 MG PO DAILY
     Route: 048
     Dates: start: 20050822
  3. SYNTHROID [Concomitant]
  4. VERAPAMIL [Concomitant]
  5. NEXIUM [Concomitant]
  6. ZESTRIL [Concomitant]
  7. HYDROCHLOROTHIAZIDE [Concomitant]
  8. M.V.I. [Concomitant]
  9. CALCIUM W/ VIT D [Concomitant]
  10. TYLENOL [Concomitant]

REACTIONS (9)
  - BILIARY TRACT DISORDER [None]
  - DISEASE PROGRESSION [None]
  - HYPOVOLAEMIA [None]
  - JAUNDICE [None]
  - LIVER FUNCTION TEST ABNORMAL [None]
  - NAUSEA [None]
  - OBSTRUCTION [None]
  - TACHYCARDIA [None]
  - VOMITING [None]
